FAERS Safety Report 8553550-0 (Version None)
Quarter: 2012Q3

REPORT INFORMATION
  Report Type: 
  Country: None (occurrence: None)
  Receive Date: 20120731
  Receipt Date: 20120727
  Transmission Date: 20120928
  Serious: No
  Sender: FDA-Public Use
  Company Number: US-PFIZER INC-2012183993

PATIENT
  Sex: Female

DRUGS (1)
  1. INLYTA [Suspect]
     Indication: ADRENAL DISORDER
     Dosage: 5 MG, 2X/DAY

REACTIONS (1)
  - ASTHENIA [None]
